FAERS Safety Report 5400763-2 (Version None)
Quarter: 2007Q3

REPORT INFORMATION
  Report Type: 
  Country: None (occurrence: None)
  Receive Date: 20070730
  Receipt Date: 20070720
  Transmission Date: 20080115
  Serious: Yes (Hospitalization)
  Sender: FDA-Public Use
  Company Number: CH-PFIZER INC-2007060364

PATIENT
  Age: 49 Year
  Sex: Female

DRUGS (8)
  1. ATORVASTATIN CALCIUM [Suspect]
     Indication: HYPERCHOLESTEROLAEMIA
     Route: 048
  2. PLAVIX [Interacting]
     Indication: ANGINA PECTORIS
     Route: 048
  3. ASPIRIN [Concomitant]
     Indication: PROPHYLAXIS
  4. EFFEXOR [Concomitant]
  5. DIOVAN HCT [Concomitant]
     Indication: ESSENTIAL HYPERTENSION
  6. LOPRESSOR [Concomitant]
     Indication: ESSENTIAL HYPERTENSION
  7. METFORMIN HCL [Concomitant]
     Indication: TYPE 2 DIABETES MELLITUS
  8. INSULATARD HM [Concomitant]
     Indication: TYPE 2 DIABETES MELLITUS

REACTIONS (3)
  - ATRIOVENTRICULAR BLOCK [None]
  - CARDIAC ARREST [None]
  - DRUG INEFFECTIVE [None]
